FAERS Safety Report 5860824-0 (Version None)
Quarter: 2008Q3

REPORT INFORMATION
  Report Type: 
  Country: None (occurrence: None)
  Receive Date: 20080827
  Receipt Date: 20080819
  Transmission Date: 20090109
  Serious: Yes (Hospitalization)
  Sender: FDA-Public Use
  Company Number: DE-ABBOTT-08P-062-0470090-00

PATIENT
  Sex: Female

DRUGS (3)
  1. HUMIRA [Suspect]
     Indication: PSORIATIC ARTHROPATHY
     Route: 058
     Dates: start: 20080807
  2. HUMIRA [Suspect]
     Dates: start: 20080201, end: 20080522
  3. RAMIPRIL [Concomitant]
     Indication: BLOOD PRESSURE MANAGEMENT

REACTIONS (3)
  - FULL BLOOD COUNT ABNORMAL [None]
  - RENAL DISORDER [None]
  - RENAL FUNCTION TEST ABNORMAL [None]
